FAERS Safety Report 17251397 (Version 1)
Quarter: 2019Q4

REPORT INFORMATION
  Report Type: Spontaneous
  Country: US (occurrence: US)
  Receive Date: 20191213
  Receipt Date: 20191213
  Transmission Date: 20200122
  Serious: Yes (Hospitalization)
  Sender: FDA-Public Use
  Company Number: None

PATIENT
  Age: 5 Year
  Sex: Female
  Weight: 20.5 kg

DRUGS (2)
  1. METHOTREXATE. [Suspect]
     Active Substance: METHOTREXATE
     Dates: end: 20191107
  2. VINCRISTINE [Suspect]
     Active Substance: VINCRISTINE
     Dates: end: 20191107

REACTIONS (2)
  - Vomiting [None]
  - Clostridium difficile colitis [None]

NARRATIVE: CASE EVENT DATE: 20191114
